FAERS Safety Report 8259768-9 (Version None)
Quarter: 2012Q2

REPORT INFORMATION
  Report Type: 
  Country: None (occurrence: None)
  Receive Date: 20120404
  Receipt Date: 20120403
  Transmission Date: 20120825
  Serious: Yes (Death, Hospitalization)
  Sender: FDA-Public Use
  Company Number: AR-B.I. PHARMACEUTICALS,INC./RIDGEFIELD-2012-RA-00078RA

PATIENT
  Age: 91 Year
  Sex: Female
  Weight: 60 kg

DRUGS (4)
  1. ENALAPRIL [Concomitant]
     Route: 048
  2. PRADAXA [Suspect]
     Indication: CEREBROVASCULAR ACCIDENT PROPHYLAXIS
     Dosage: 220 MG
     Route: 048
     Dates: start: 20111201, end: 20120324
  3. BISOPROLOL FUMARATE [Concomitant]
     Route: 048
  4. AMIODARONE HCL [Concomitant]
     Indication: ATRIAL FIBRILLATION
     Dosage: 200 MG
     Route: 048

REACTIONS (1)
  - HAEMORRHAGIC STROKE [None]
